FAERS Safety Report 15524397 (Version 1)
Quarter: 2018Q4

REPORT INFORMATION
  Report Type: Spontaneous
  Country: NO (occurrence: NO)
  Receive Date: 20181018
  Receipt Date: 20181018
  Transmission Date: 20190205
  Serious: Yes (Other)
  Sender: FDA-Public Use
  Company Number: NO-009507513-1810NOR007903

PATIENT
  Sex: Female

DRUGS (1)
  1. INTERFERON ALFA-2B [Suspect]
     Active Substance: INTERFERON ALFA-2B
     Dosage: UNK
     Dates: start: 2008

REACTIONS (3)
  - Thrombocytopenia [Unknown]
  - Asthenia [Unknown]
  - Critical illness [Unknown]
